FAERS Safety Report 16933436 (Version 1)
Quarter: 2019Q4

REPORT INFORMATION
  Report Type: Spontaneous
  Country: US (occurrence: US)
  Receive Date: 20191018
  Receipt Date: 20191018
  Transmission Date: 20200122
  Serious: No
  Sender: FDA-Public Use
  Company Number: US-ASTRAZENECA-2019SF36180

PATIENT
  Age: 77 Year
  Sex: Female
  Weight: 81.2 kg

DRUGS (20)
  1. FLOVENT [Concomitant]
     Active Substance: FLUTICASONE PROPIONATE
  2. LIPITOR [Concomitant]
     Active Substance: ATORVASTATIN CALCIUM
  3. VENTOLIN HFA [Concomitant]
     Active Substance: ALBUTEROL SULFATE
  4. CITRUS CALCIUM WITH VITAMIN D [Concomitant]
     Dosage: DAILY
     Route: 048
  5. METFORMIN [Concomitant]
     Active Substance: METFORMIN HYDROCHLORIDE
  6. BROVANA [Concomitant]
     Active Substance: ARFORMOTEROL TARTRATE
  7. OMEPRAZOLE. [Concomitant]
     Active Substance: OMEPRAZOLE
  8. FASENRA [Suspect]
     Active Substance: BENRALIZUMAB
     Indication: ASTHMA
     Dosage: 30.0MG UNKNOWN
     Route: 058
  9. SPIRIVA [Concomitant]
     Active Substance: TIOTROPIUM BROMIDE MONOHYDRATE
  10. ALLOPURINOL. [Concomitant]
     Active Substance: ALLOPURINOL
  11. LASIX [Concomitant]
     Active Substance: FUROSEMIDE
  12. PROLIA [Concomitant]
     Active Substance: DENOSUMAB
  13. VITAMIN B12 [Concomitant]
     Active Substance: CYANOCOBALAMIN
  14. VITAMIN D3 [Concomitant]
     Active Substance: CHOLECALCIFEROL
     Dosage: DAILY
     Route: 048
  15. ALBUTEROL. [Concomitant]
     Active Substance: ALBUTEROL
     Dosage: 2.5 MG/3 ML
     Route: 055
  16. INCRUSE ELLIPTA [Concomitant]
     Active Substance: UMECLIDINIUM BROMIDE
     Dosage: DAILY
  17. ASPIRIN. [Concomitant]
     Active Substance: ASPIRIN
  18. SINGULAIR [Concomitant]
     Active Substance: MONTELUKAST SODIUM
  19. ADVAIR HFA [Concomitant]
     Active Substance: FLUTICASONE PROPIONATE\SALMETEROL XINAFOATE
  20. CETRIZINE [Concomitant]
     Active Substance: CETIRIZINE HYDROCHLORIDE

REACTIONS (16)
  - Nasopharyngitis [Unknown]
  - Dyspnoea [Unknown]
  - Emphysema [Unknown]
  - Wheezing [Recovering/Resolving]
  - Temperature intolerance [Unknown]
  - Asthma [Unknown]
  - Pruritus [Unknown]
  - Tachypnoea [Unknown]
  - Hypersensitivity [Unknown]
  - Rash [Recovered/Resolved]
  - Stress [Recovering/Resolving]
  - Epistaxis [Unknown]
  - Product dose omission [Unknown]
  - Cough [Recovering/Resolving]
  - Rhinitis allergic [Unknown]
  - Injection site hypersensitivity [Unknown]

NARRATIVE: CASE EVENT DATE: 20190806
